FAERS Safety Report 5593570-1 (Version None)
Quarter: 2008Q1

REPORT INFORMATION
  Report Type: 
  Country: None (occurrence: None)
  Receive Date: 20080116
  Receipt Date: 20080109
  Transmission Date: 20080703
  Serious: Yes (Death, Hospitalization)
  Sender: FDA-Public Use
  Company Number: DE-ROCHE-534338

PATIENT
  Age: 53 Year
  Sex: Female
  Weight: 82 kg

DRUGS (8)
  1. CAPECITABINE [Suspect]
     Indication: BREAST CANCER METASTATIC
     Dosage: FREQUENCY: DAY 1-14 EVERY 3 WEEKS.
     Route: 048
     Dates: start: 20071016, end: 20071115
  2. TAXOL [Suspect]
     Indication: BREAST CANCER METASTATIC
     Route: 042
     Dates: start: 20071016, end: 20071113
  3. EPIRUBICIN [Suspect]
     Indication: BREAST CANCER METASTATIC
     Route: 042
     Dates: start: 20070822, end: 20071002
  4. CYCLOPHOSPHAMIDE [Suspect]
     Indication: BREAST CANCER METASTATIC
     Route: 042
     Dates: start: 20070822, end: 20071002
  5. NEORECORMON [Suspect]
     Indication: DRUG USE FOR UNKNOWN INDICATION
     Route: 058
     Dates: start: 20070822, end: 20071106
  6. L-THYROXIN [Concomitant]
     Route: 048
     Dates: start: 20020101
  7. DIOVAN HCT [Concomitant]
     Dosage: DOSE: 160MG/125 MG.
     Route: 048
     Dates: start: 20000101
  8. FERROUS SULFATE TAB [Concomitant]
     Route: 048
     Dates: start: 20070801

REACTIONS (4)
  - DRUG TOXICITY [None]
  - LEUKOPENIA [None]
  - PYREXIA [None]
  - THROMBOCYTOPENIA [None]
